FAERS Safety Report 14139758 (Version 1)
Quarter: 2017Q4

REPORT INFORMATION
  Report Type: Spontaneous
  Country: JP (occurrence: JP)
  Receive Date: 20171029
  Receipt Date: 20171029
  Transmission Date: 20180321
  Serious: Yes (Hospitalization, Other)
  Sender: FDA-Public Use
  Company Number: JP-BAXTER-2017BAX033670

PATIENT
  Age: 63 Year
  Sex: Male
  Weight: 60 kg

DRUGS (13)
  1. BRIDION [Suspect]
     Active Substance: SUGAMMADEX
     Indication: PRODUCT USED FOR UNKNOWN INDICATION
     Route: 065
     Dates: start: 20170915, end: 20170915
  2. XYLOCAINE WITH EPINEPHRINE [Concomitant]
     Active Substance: EPINEPHRINE BITARTRATE\LIDOCAINE HYDROCHLORIDE
     Indication: PRODUCT USED FOR UNKNOWN INDICATION
     Route: 065
  3. SULBACILLIN [Concomitant]
     Active Substance: AMPICILLIN SODIUM\SULBACTAM SODIUM
     Indication: PRODUCT USED FOR UNKNOWN INDICATION
     Route: 065
  4. FENTANYL. [Suspect]
     Active Substance: FENTANYL
     Indication: ANALGESIC THERAPY
     Route: 042
     Dates: start: 20170915, end: 20170915
  5. ULTIVA [Suspect]
     Active Substance: REMIFENTANIL HYDROCHLORIDE
     Indication: ANALGESIC THERAPY
     Route: 042
     Dates: start: 20170915, end: 20170915
  6. ESLAX [Suspect]
     Active Substance: ROCURONIUM BROMIDE
     Indication: SPINAL FUSION SURGERY
     Route: 065
     Dates: start: 20170915, end: 20170915
  7. EPHEDRIN [Suspect]
     Active Substance: EPHEDRINE HYDROCHLORIDE
     Indication: PRODUCT USED FOR UNKNOWN INDICATION
     Route: 065
     Dates: start: 20170915, end: 20170915
  8. SUPRANE [Suspect]
     Active Substance: DESFLURANE
     Indication: SEDATIVE THERAPY
     Dosage: DURATION OF ANESTHESIA: 4 HOURS
     Route: 055
     Dates: start: 20170915, end: 20170915
  9. PROPOFOL. [Suspect]
     Active Substance: PROPOFOL
     Indication: SEDATIVE THERAPY
     Route: 042
     Dates: start: 20170915, end: 20170915
  10. ACELIO [Suspect]
     Active Substance: ACETAMINOPHEN
     Indication: PRODUCT USED FOR UNKNOWN INDICATION
     Route: 065
     Dates: start: 20170915, end: 20170915
  11. NEOSYNESIN [Suspect]
     Active Substance: PHENYLEPHRINE HYDROCHLORIDE
     Indication: PRODUCT USED FOR UNKNOWN INDICATION
     Route: 065
     Dates: start: 20170915
  12. FOSMICIN-S [Concomitant]
     Active Substance: FOSFOMYCIN SODIUM
     Indication: PRODUCT USED FOR UNKNOWN INDICATION
     Route: 065
  13. FAMOTIDINE. [Suspect]
     Active Substance: FAMOTIDINE
     Indication: PRODUCT USED FOR UNKNOWN INDICATION
     Route: 065

REACTIONS (4)
  - Pyrexia [Recovering/Resolving]
  - Blood creatine phosphokinase increased [Recovering/Resolving]
  - Depressed level of consciousness [Unknown]
  - Anaemia [Unknown]

NARRATIVE: CASE EVENT DATE: 20170916
